FAERS Safety Report 23672282 (Version 1)
Quarter: 2024Q1

REPORT INFORMATION
  Report Type: Spontaneous
  Country: US (occurrence: None)
  Receive Date: 20240325
  Receipt Date: 20240325
  Transmission Date: 20240409
  Serious: Yes (Hospitalization)
  Sender: FDA-Public Use
  Company Number: None

PATIENT
  Age: 5 Year
  Sex: Female

DRUGS (2)
  1. AFINITOR DISPERZ [Suspect]
     Active Substance: EVEROLIMUS
     Indication: Tuberous sclerosis complex
     Dosage: FREQUENCY : DAILY;?
     Route: 048
     Dates: start: 20230530
  2. VIGABATRIN [Concomitant]
     Active Substance: VIGABATRIN

REACTIONS (3)
  - Respiratory disorder [None]
  - Oxygen saturation decreased [None]
  - Illness [None]

NARRATIVE: CASE EVENT DATE: 20240304
